FAERS Safety Report 15800994 (Version 2)
Quarter: 2019Q1

REPORT INFORMATION
  Report Type: Spontaneous
  Country: IT (occurrence: IT)
  Receive Date: 20190109
  Receipt Date: 20190122
  Transmission Date: 20190417
  Serious: Yes (Other)
  Sender: FDA-Public Use
  Company Number: IT-AUROBINDO-AUR-APL-2018-063880

PATIENT
  Age: 74 Year
  Sex: Male

DRUGS (2)
  1. CLOPIDOGREL [Suspect]
     Active Substance: CLOPIDOGREL BISULFATE
     Indication: ATRIAL FIBRILLATION
     Dosage: UNK
     Route: 065
  2. FACTOR VIII [Concomitant]
     Active Substance: ANTIHEMOPHILIC FACTOR HUMAN
     Indication: HAEMOPHILIA
     Dosage: 23 INTERNATIONAL UNIT/KILOGRAM (TAPERED DOSE)
     Route: 065

REACTIONS (2)
  - Haemarthrosis [Recovered/Resolved]
  - Epistaxis [Recovered/Resolved]
